FAERS Safety Report 7817178-X (Version None)
Quarter: 2011Q4

REPORT INFORMATION
  Report Type: 
  Country: None (occurrence: None)
  Receive Date: 20111017
  Receipt Date: 20111017
  Transmission Date: 20120403
  Serious: Yes (Death)
  Sender: FDA-Public Use
  Company Number: None

PATIENT
  Age: 39 Year
  Sex: Female
  Weight: 47.627 kg

DRUGS (1)
  1. LEXAPRO [Suspect]

REACTIONS (3)
  - ANXIETY [None]
  - ASPHYXIA [None]
  - FEELING ABNORMAL [None]
